FAERS Safety Report 4352286-X (Version None)
Quarter: 2004Q2

REPORT INFORMATION
  Report Type: 
  Country: None (occurrence: None)
  Receive Date: 20040429
  Receipt Date: 20030325
  Transmission Date: 20050107
  Serious: Yes (Hospitalization)
  Sender: FDA-Public Use
  Company Number: 21105

PATIENT
  Age: 80 Year
  Sex: Male

DRUGS (1)
  1. ALDARA [Suspect]
     Indication: ACTINIC KERATOSIS
     Dosage: (1 IN 1 DAY(S)), TOPICAL
     Route: 061
     Dates: start: 20030106, end: 20030101

REACTIONS (2)
  - BLOOD GLUCOSE INCREASED [None]
  - CONFUSIONAL STATE [None]
